FAERS Safety Report 26116145 (Version 1)
Quarter: 2025Q4

REPORT INFORMATION
  Report Type: Spontaneous
  Country: CA (occurrence: CA)
  Receive Date: 20251203
  Receipt Date: 20251203
  Transmission Date: 20260117
  Serious: Yes (Hospitalization, Other)
  Sender: TEVA
  Company Number: CA-TEVA-VS-3398164

PATIENT
  Age: 75 Year
  Sex: Female

DRUGS (4)
  1. PREGABALIN [Suspect]
     Active Substance: PREGABALIN
     Indication: Product used for unknown indication
     Route: 065
  2. HYDROMORPHONE HYDROCHLORIDE [Suspect]
     Active Substance: HYDROMORPHONE HYDROCHLORIDE
     Indication: Product used for unknown indication
     Route: 048
  3. ACETAMINOPHEN [Suspect]
     Active Substance: ACETAMINOPHEN
     Indication: Product used for unknown indication
     Dosage: DOSE FORM: NOT SPECIFIED
     Route: 065
  4. HYDROMORPHONE [Suspect]
     Active Substance: HYDROMORPHONE
     Indication: Product used for unknown indication
     Dosage: DOSE FORM: CAPSULE, SUSTAINED-RELEASE
     Route: 048

REACTIONS (4)
  - Fall [Recovered/Resolved]
  - Inappropriate schedule of product administration [Recovered/Resolved]
  - Labelled drug-drug interaction issue [Recovered/Resolved]
  - Toxicity to various agents [Recovered/Resolved]
